FAERS Safety Report 7015404-0 (Version None)
Quarter: 2010Q3

REPORT INFORMATION
  Report Type: 
  Country: None (occurrence: None)
  Receive Date: 20100927
  Receipt Date: 20100917
  Transmission Date: 20110219
  Serious: Yes (Hospitalization, Disabling, Other)
  Sender: FDA-Public Use
  Company Number: PHHY2010BR62280

PATIENT
  Sex: Female

DRUGS (3)
  1. EXELON [Suspect]
     Indication: DEMENTIA ALZHEIMER'S TYPE
     Dosage: 2.5 MG, BID (2 MG, 120 ML)
     Route: 048
     Dates: start: 20050101
  2. CITALEC [Concomitant]
     Indication: DEPRESSION
     Dosage: 1 TABLET PER DAY
     Route: 048
  3. RIVOTRIL [Concomitant]
     Indication: SLEEP DISORDER
     Dosage: 1 TABLET PER DAY
     Route: 048

REACTIONS (5)
  - BEDRIDDEN [None]
  - BONE OPERATION [None]
  - FALL [None]
  - FEMUR FRACTURE [None]
  - VOMITING [None]
